FAERS Safety Report 5171593-4 (Version None)
Quarter: 2006Q4

REPORT INFORMATION
  Report Type: 
  Country: None (occurrence: None)
  Receive Date: 20061213
  Receipt Date: 20061205
  Transmission Date: 20070319
  Serious: Yes (Hospitalization)
  Sender: FDA-Public Use
  Company Number: US-ROCHE-473770

PATIENT
  Age: 46 Year
  Sex: Female
  Weight: 116.7 kg

DRUGS (18)
  1. MYCOPHENOLATE MOFETIL [Suspect]
     Route: 048
     Dates: start: 20041020
  2. CYCLOSPORINE [Suspect]
     Route: 048
     Dates: start: 20041111, end: 20060209
  3. CYCLOSPORINE [Suspect]
     Route: 048
     Dates: start: 20060210
  4. MEDROL [Suspect]
     Route: 048
     Dates: start: 20041020
  5. FUROSEMIDE [Concomitant]
     Dates: start: 20041020
  6. CALCIUM NOS [Concomitant]
     Dates: start: 20041117
  7. PROTONIX [Concomitant]
     Dates: start: 20041020
  8. METOPROLOL SUCCINATE [Concomitant]
     Dates: start: 20041130
  9. LIPITOR [Concomitant]
     Dates: start: 20050131
  10. ASPIRIN [Concomitant]
     Dates: start: 20041215
  11. NIFEDIPINE HCL [Concomitant]
     Dates: start: 20041020
  12. NPH INSULIN [Concomitant]
     Dates: start: 20041031
  13. NOVOLOG [Concomitant]
     Dosage: VARIABLE.
     Dates: start: 20050421
  14. LISINOPRIL [Concomitant]
     Dates: start: 20041222
  15. NEURONTIN [Concomitant]
     Dates: start: 20041117
  16. DARVON [Concomitant]
     Dosage: VARIABLE.
     Dates: start: 20041117
  17. K-PHOS NEUTRAL [Concomitant]
     Dates: start: 20041020
  18. MAG OXIDE [Concomitant]
     Dates: start: 20041117

REACTIONS (7)
  - CHEST PAIN [None]
  - DIZZINESS [None]
  - MYOCARDIAL ISCHAEMIA [None]
  - NAUSEA [None]
  - RENAL TRANSPLANT [None]
  - VENTRICULAR EXTRASYSTOLES [None]
  - VOMITING [None]
